FAERS Safety Report 9305080 (Version 2)
Quarter: 2013Q2

REPORT INFORMATION
  Report Type: Report from Study
  Country: AR (occurrence: AR)
  Receive Date: 20130523
  Receipt Date: 20130524
  Transmission Date: 20140414
  Serious: Yes (Death)
  Sender: FDA-Public Use
  Company Number: AR-ROCHE-1227216

PATIENT
  Age: 55 Year
  Sex: Male
  Weight: 89 kg

DRUGS (4)
  1. AVASTIN [Suspect]
     Indication: COLON CANCER METASTATIC
     Route: 065
     Dates: start: 20130211, end: 20130421
  2. OXALIPLATIN [Concomitant]
     Indication: COLORECTAL CANCER
  3. FLUOROURACIL [Concomitant]
     Indication: COLORECTAL CANCER
  4. LEUCOVORIN [Concomitant]
     Indication: COLORECTAL CANCER

REACTIONS (2)
  - Sepsis [Fatal]
  - Scar [Fatal]
